FAERS Safety Report 5631416-3 (Version None)
Quarter: 2008Q1

REPORT INFORMATION
  Report Type: 
  Country: None (occurrence: None)
  Receive Date: 20080212
  Receipt Date: 20080204
  Transmission Date: 20080703
  Serious: Yes (Death)
  Sender: FDA-Public Use
  Company Number: 2008-00883

PATIENT
  Age: 48 Year
  Sex: Male

DRUGS (5)
  1. LOVASTATIN [Suspect]
  2. LISINOPRIL [Suspect]
  3. THIAZOLIDINEDIONE() [Suspect]
  4. VARDENAFIL(VARDENAFIL) [Suspect]
  5. NITRATE, LONG-ACTING() [Suspect]

REACTIONS (1)
  - DEATH [None]
